FAERS Safety Report 6337133-9 (Version None)
Quarter: 2009Q3

REPORT INFORMATION
  Report Type: 
  Country: None (occurrence: None)
  Receive Date: 20090831
  Receipt Date: 20090722
  Transmission Date: 20100115
  Serious: Yes (Hospitalization)
  Sender: FDA-Public Use
  Company Number: DSJ-2009-10349

PATIENT
  Age: 66 Year
  Sex: Female

DRUGS (2)
  1. BENICAR [Suspect]
     Indication: HYPERTENSION
     Dosage: 20MG (1 IN 1 D), PER ORAL
     Route: 048
     Dates: start: 20070101
  2. AMFEPRAMONE (AMFEPRAMONE) (TABLET) (AMFEPRAMONE) [Concomitant]
     Indication: DECREASED APPETITE
     Dosage: 30 MG (30 MG, 1 IN 1 D), PER ORAL
     Route: 048
     Dates: end: 20090101

REACTIONS (2)
  - CONVERSION DISORDER [None]
  - DRUG INEFFECTIVE [None]
